FAERS Safety Report 7910322-5 (Version None)
Quarter: 2011Q4

REPORT INFORMATION
  Report Type: 
  Country: None (occurrence: None)
  Receive Date: 20111111
  Receipt Date: 20111108
  Transmission Date: 20120403
  Serious: Yes (Hospitalization)
  Sender: FDA-Public Use
  Company Number: US-JNJFOC-20111103951

PATIENT
  Sex: Female
  Weight: 80.74 kg

DRUGS (1)
  1. SIMPONI [Suspect]
     Indication: RHEUMATOID ARTHRITIS
     Route: 058
     Dates: start: 20110901, end: 20111101

REACTIONS (4)
  - RASH [None]
  - OCULAR HYPERAEMIA [None]
  - HEADACHE [None]
  - BLISTER [None]
